FAERS Safety Report 4274751-6 (Version None)
Quarter: 2004Q1

REPORT INFORMATION
  Report Type: 
  Country: None (occurrence: None)
  Receive Date: 20040120
  Receipt Date: 20040120
  Transmission Date: 20041129
  Serious: Yes (Other)
  Sender: FDA-Public Use
  Company Number: None

PATIENT
  Age: 80 Year
  Sex: Male
  Weight: 78.7 kg

DRUGS (7)
  1. GATIFLOXACIN [Suspect]
     Indication: URINARY TRACT INFECTION
     Dosage: 40 MG PO Q 24 HRS
     Route: 048
  2. KCL TAB [Concomitant]
  3. PLAVIX [Concomitant]
  4. PULMICORT [Concomitant]
  5. VASOTEC [Concomitant]
  6. FUROSEMIDE [Concomitant]
  7. AMARYL [Concomitant]

REACTIONS (3)
  - BLOOD GLUCOSE DECREASED [None]
  - CHEST PAIN [None]
  - PAIN IN JAW [None]
